FAERS Safety Report 9081540 (Version 1)
Quarter: 2013Q1

REPORT INFORMATION
  Report Type: Spontaneous
  Country: US (occurrence: US)
  Receive Date: 20130218
  Receipt Date: 20130218
  Transmission Date: 20140127
  Serious: No
  Sender: FDA-Public Use
  Company Number: US-PFIZER INC-2013060499

PATIENT
  Age: 66 Year
  Sex: Male
  Weight: 113.38 kg

DRUGS (5)
  1. ADVIL [Suspect]
     Indication: PAIN
     Dosage: 200 MG, ONCE A DAY OR SOMETIMES TWO TIMES A DAY
     Route: 048
     Dates: start: 201302, end: 201302
  2. ADVIL [Suspect]
     Indication: INFLAMMATION
  3. ADVIL [Suspect]
     Indication: MUSCLE SPASMS
  4. ADVIL [Suspect]
     Indication: BACK PAIN
  5. BABY ASPIRIN [Concomitant]
     Dosage: UNK
     Route: 048

REACTIONS (2)
  - Drug ineffective [Unknown]
  - Incorrect drug dosage form administered [Unknown]
